FAERS Safety Report 4309014-3 (Version None)
Quarter: 2004Q1

REPORT INFORMATION
  Report Type: 
  Country: None (occurrence: None)
  Receive Date: 20040302
  Receipt Date: 20040209
  Transmission Date: 20041129
  Serious: Yes (Hospitalization)
  Sender: FDA-Public Use
  Company Number: DK-BRISTOL-MYERS SQUIBB COMPANY-12500773

PATIENT
  Age: 53 Year
  Sex: Male
  Weight: 76 kg

DRUGS (4)
  1. CISPLATIN [Suspect]
     Indication: BLADDER CANCER
     Dosage: CUMULATIVE DOSE: 133 MG
     Dates: start: 20040202, end: 20040202
  2. TAXOL [Suspect]
     Indication: BLADDER CANCER
     Dosage: CUMULATIVE DOSE: 152 MG
     Dates: start: 20040202, end: 20040202
  3. GEMCITABINE [Suspect]
     Indication: BLADDER CANCER
     Dosage: CUMULATIVE DOSE: 1900 MG
     Dates: start: 20040202, end: 20040202
  4. MORPHINE [Concomitant]
     Dates: start: 20040203

REACTIONS (3)
  - CONSTIPATION [None]
  - DEHYDRATION [None]
  - GENERAL PHYSICAL HEALTH DETERIORATION [None]
